FAERS Safety Report 8465873-4 (Version None)
Quarter: 2012Q2

REPORT INFORMATION
  Report Type: 
  Country: None (occurrence: None)
  Receive Date: 20120626
  Receipt Date: 20120621
  Transmission Date: 20120825
  Serious: Yes (Life-Threatening, Hospitalization)
  Sender: FDA-Public Use
  Company Number: DK-PFIZER INC-2012151739

PATIENT
  Age: 26 Year
  Sex: Male
  Weight: 70 kg

DRUGS (1)
  1. TRANEXAMSYRE [Suspect]
     Indication: POST PROCEDURAL HAEMORRHAGE
     Dosage: 1 G, SINGLE
     Route: 042
     Dates: start: 20120605, end: 20120605

REACTIONS (2)
  - SYNCOPE [None]
  - CARDIAC ARREST [None]
